FAERS Safety Report 20212234 (Version 1)
Quarter: 2021Q4

REPORT INFORMATION
  Report Type: Other
  Country: US (occurrence: US)
  Receive Date: 20211221
  Receipt Date: 20211221
  Transmission Date: 20220303
  Serious: Yes (Other)
  Sender: FDA-Public Use
  Company Number: US-ACORDA-ACO_169813_2021

PATIENT
  Age: 67 Year
  Sex: Male

DRUGS (5)
  1. INBRIJA [Suspect]
     Active Substance: LEVODOPA
     Indication: Parkinson^s disease
     Dosage: 2 DOSAGE FORM, PRN, DO NOT EXCEED 5 DOSES PER DAY
     Dates: start: 20201020
  2. INBRIJA [Suspect]
     Active Substance: LEVODOPA
     Indication: On and off phenomenon
  3. CARBIDOPA\LEVODOPA [Suspect]
     Active Substance: CARBIDOPA\LEVODOPA
     Indication: Product used for unknown indication
     Dosage: 25-250 MG
     Route: 065
  4. CARBIDOPA\LEVODOPA [Suspect]
     Active Substance: CARBIDOPA\LEVODOPA
     Dosage: UNK, DECREASED
     Route: 065
  5. ENTACAPONE [Concomitant]
     Active Substance: ENTACAPONE
     Indication: Product used for unknown indication
     Dosage: 200 MILLIGRAM
     Route: 065

REACTIONS (7)
  - Bladder cancer [Not Recovered/Not Resolved]
  - Incorrect route of product administration [Unknown]
  - Parkinson^s disease [Not Recovered/Not Resolved]
  - Memory impairment [Not Recovered/Not Resolved]
  - Localised infection [Not Recovered/Not Resolved]
  - Wound [Not Recovered/Not Resolved]
  - Fall [Unknown]

NARRATIVE: CASE EVENT DATE: 20211001
